FAERS Safety Report 15493725 (Version 2)
Quarter: 2018Q4

REPORT INFORMATION
  Report Type: Spontaneous
  Country: JP (occurrence: JP)
  Receive Date: 20181012
  Receipt Date: 20181114
  Transmission Date: 20190205
  Serious: Yes (Hospitalization, Other)
  Sender: FDA-Public Use
  Company Number: JP-CELGENEUS-JPN-20180906205

PATIENT
  Age: 8 Decade
  Sex: Male

DRUGS (7)
  1. KYTRIL [Concomitant]
     Active Substance: GRANISETRON HYDROCHLORIDE
     Indication: PROPHYLAXIS
     Dosage: UNKNOWN
     Route: 065
     Dates: start: 2018
  2. ALOXI [Concomitant]
     Active Substance: PALONOSETRON HYDROCHLORIDE
     Indication: ADVERSE EVENT
     Dosage: UNKNOWN
     Route: 065
     Dates: start: 2018
  3. DECADRON [Concomitant]
     Active Substance: DEXAMETHASONE
     Indication: PROPHYLAXIS
     Dosage: UNKNOWN
     Route: 065
     Dates: start: 2018
  4. EMEND [Concomitant]
     Active Substance: APREPITANT
     Indication: ADVERSE EVENT
     Dosage: UNKNOWN
     Route: 065
     Dates: start: 2018
  5. ISTODAX [Suspect]
     Active Substance: ROMIDEPSIN
     Indication: PERIPHERAL T-CELL LYMPHOMA UNSPECIFIED
     Dosage: UNKNOWN
     Route: 041
     Dates: start: 201808, end: 2018
  6. ISTODAX [Suspect]
     Active Substance: ROMIDEPSIN
     Dosage: UNKNOWN
     Route: 041
     Dates: start: 20181113
  7. ISTODAX [Suspect]
     Active Substance: ROMIDEPSIN
     Dosage: REDUCED DOSE
     Route: 041
     Dates: start: 2018, end: 2018

REACTIONS (4)
  - Upper limb fracture [Recovered/Resolved]
  - Nausea [Recovering/Resolving]
  - Vomiting [Recovered/Resolved]
  - Malaise [Recovering/Resolving]

NARRATIVE: CASE EVENT DATE: 2018
